FAERS Safety Report 25632372 (Version 1)
Quarter: 2025Q3

REPORT INFORMATION
  Report Type: Spontaneous
  Country: US (occurrence: US)
  Receive Date: 20250801
  Receipt Date: 20250801
  Transmission Date: 20251021
  Serious: No
  Sender: Tarsus Pharmaceuticals
  Company Number: US-TARSUS PHARMACEUTICALS-TSP-US-2025-000635

PATIENT

DRUGS (1)
  1. XDEMVY [Suspect]
     Active Substance: LOTILANER
     Indication: Arthropod infestation
     Dosage: 1 DROP, BID (ONE DROP IN EACH EYE TWICE DAILY) FOR 6 WEEKS)
     Route: 047
     Dates: start: 20250623, end: 20250624

REACTIONS (15)
  - Dyspnoea [Unknown]
  - Wheezing [Unknown]
  - Dysphonia [Unknown]
  - Speech disorder [Unknown]
  - Panic attack [Unknown]
  - Eye pain [Unknown]
  - Eye pruritus [Unknown]
  - Visual acuity reduced [Unknown]
  - Photophobia [Recovering/Resolving]
  - Visual impairment [Unknown]
  - Halo vision [Unknown]
  - Nausea [Unknown]
  - Decreased appetite [Unknown]
  - Dehydration [Unknown]
  - Malaise [Unknown]

NARRATIVE: CASE EVENT DATE: 20250623
